FAERS Safety Report 6502622-0 (Version None)
Quarter: 2009Q4

REPORT INFORMATION
  Report Type: 
  Country: None (occurrence: None)
  Receive Date: 20091217
  Receipt Date: 20091209
  Transmission Date: 20100525
  Serious: Yes (Hospitalization)
  Sender: FDA-Public Use
  Company Number: JP-ASTRAZENECA-2009SE27580

PATIENT
  Age: 32800 Day
  Sex: Female

DRUGS (10)
  1. OMEPRAL [Suspect]
     Indication: GASTRITIS
     Route: 048
     Dates: start: 20091022
  2. PURSENNID [Concomitant]
     Indication: CONSTIPATION
     Route: 048
     Dates: start: 20091101, end: 20091108
  3. MUCOSTA [Concomitant]
     Indication: DECREASED APPETITE
     Route: 048
     Dates: start: 20091022
  4. MAGNESIUM OXIDE [Concomitant]
     Indication: CONSTIPATION
     Route: 048
     Dates: start: 20091110
  5. METHYCOBAL [Concomitant]
     Indication: HERPES ZOSTER OTICUS
     Route: 048
     Dates: start: 20090907, end: 20091023
  6. METHYCOBAL [Concomitant]
     Route: 048
     Dates: start: 20091121
  7. ADETPHOS [Concomitant]
     Indication: HERPES ZOSTER OTICUS
     Route: 048
     Dates: start: 20090907, end: 20091023
  8. ADETPHOS [Concomitant]
     Route: 048
     Dates: start: 20091121
  9. ACINON [Concomitant]
     Route: 048
     Dates: start: 20090907, end: 20091021
  10. ACINON [Concomitant]
     Route: 048
     Dates: start: 20091121

REACTIONS (3)
  - BLOOD PHOSPHORUS DECREASED [None]
  - HYPOCALCAEMIA [None]
  - HYPOKALAEMIA [None]
